FAERS Safety Report 9460495 (Version 1)
Quarter: 2013Q3

REPORT INFORMATION
  Report Type: Spontaneous
  Country: US (occurrence: US)
  Receive Date: 20130815
  Receipt Date: 20130815
  Transmission Date: 20140515
  Serious: Yes (Other)
  Sender: FDA-Public Use
  Company Number: CHPA2013US012841

PATIENT
  Sex: Female

DRUGS (2)
  1. GAS-X EXTSTR CHEW TABS PEPPERMINT CREME [Suspect]
     Indication: FLATULENCE
     Dosage: 1 TO 2 DF, PRN
     Route: 048
  2. NEXIUM//ESOMEPRAZOLE SODIUM [Concomitant]
     Dosage: UNK
     Route: 048

REACTIONS (2)
  - Irritable bowel syndrome [Not Recovered/Not Resolved]
  - Wrong technique in drug usage process [Unknown]
